FAERS Safety Report 9963575 (Version 1)
Quarter: 2014Q1

REPORT INFORMATION
  Report Type: Report from Study
  Country: US (occurrence: US)
  Receive Date: 20140305
  Receipt Date: 20140305
  Transmission Date: 20141002
  Serious: No
  Sender: FDA-Public Use
  Company Number: US-ABBVIE-13P-163-1117254-00

PATIENT
  Age: 49 Year
  Sex: Female

DRUGS (9)
  1. HUMIRA [Suspect]
     Indication: COLITIS ULCERATIVE
     Dates: start: 20130531
  2. OMEPRAZOLE [Concomitant]
     Indication: DYSPEPSIA
  3. AZATHIOPRINE [Concomitant]
     Indication: PRODUCT USED FOR UNKNOWN INDICATION
  4. LIALDA [Concomitant]
     Indication: COLITIS ULCERATIVE
  5. FLUTICASONE [Concomitant]
     Indication: SINUS DISORDER
     Dosage: 2 SPARAYS EACH NOSTRIL
  6. HYDROCODONE [Concomitant]
     Indication: PAIN
     Dosage: 5/500 MG 1 OR 2 A DAY
  7. HYDROCODONE [Concomitant]
     Indication: HEADACHE
  8. GABAPENTIN [Concomitant]
     Indication: PAIN
  9. NORTRIPTYLINE [Concomitant]
     Indication: DEPRESSION

REACTIONS (3)
  - Somnolence [Not Recovered/Not Resolved]
  - Somnolence [Not Recovered/Not Resolved]
  - Colitis ulcerative [Not Recovered/Not Resolved]
